FAERS Safety Report 15489246 (Version 1)
Quarter: 2018Q4

REPORT INFORMATION
  Report Type: Spontaneous
  Country: US (occurrence: US)
  Receive Date: 20181004
  Receipt Date: 20181004
  Transmission Date: 20190205
  Serious: Yes (Other)
  Sender: FDA-Public Use
  Company Number: None

PATIENT
  Age: 76 Year
  Sex: Female
  Weight: 77.85 kg

DRUGS (7)
  1. PERCOCET [Concomitant]
     Active Substance: ACETAMINOPHEN\OXYCODONE HYDROCHLORIDE
  2. XGEVA [Concomitant]
     Active Substance: DENOSUMAB
  3. CALCIUM [Concomitant]
     Active Substance: CALCIUM
  4. IBRANCE [Suspect]
     Active Substance: PALBOCICLIB
     Indication: BREAST CANCER
     Route: 048
     Dates: start: 20181004
  5. VERZENIO [Concomitant]
     Active Substance: ABEMACICLIB
  6. OXYCODONE [Concomitant]
     Active Substance: OXYCODONE
  7. SENNA [Concomitant]
     Active Substance: SENNA LEAF\SENNOSIDES\SENNOSIDES A AND B

REACTIONS (1)
  - Product dose omission [None]

NARRATIVE: CASE EVENT DATE: 20181004
